FAERS Safety Report 20054108 (Version 1)
Quarter: 2021Q4

REPORT INFORMATION
  Report Type: Spontaneous
  Country: US (occurrence: None)
  Receive Date: 20211110
  Receipt Date: 20211110
  Transmission Date: 20220303
  Serious: Yes (Disabling)
  Sender: FDA-Public Use
  Company Number: None

PATIENT
  Age: 61 Year
  Sex: Male
  Weight: 2.7 kg

DRUGS (2)
  1. XARELTO [Suspect]
     Active Substance: RIVAROXABAN
     Indication: Thrombosis prophylaxis
     Dates: start: 20140301, end: 20210315
  2. XARELTO [Suspect]
     Active Substance: RIVAROXABAN
     Indication: Thrombosis prophylaxis

REACTIONS (11)
  - Gynaecomastia [None]
  - Gynaecomastia [None]
  - Breast pain [None]
  - Pain [None]
  - Pain in extremity [None]
  - Pain in extremity [None]
  - Arthralgia [None]
  - Musculoskeletal chest pain [None]
  - Back pain [None]
  - Arthralgia [None]
  - Pain [None]

NARRATIVE: CASE EVENT DATE: 20200110
